FAERS Safety Report 14603176 (Version 1)
Quarter: 2018Q1

REPORT INFORMATION
  Report Type: Spontaneous
  Country: JP (occurrence: JP)
  Receive Date: 20180306
  Receipt Date: 20180306
  Transmission Date: 20180509
  Serious: Yes (Death)
  Sender: FDA-Public Use
  Company Number: JP-ROCHE-2082493

PATIENT
  Age: 45 Year
  Sex: Male

DRUGS (1)
  1. XELODA [Suspect]
     Active Substance: CAPECITABINE
     Indication: GASTRIC CANCER
     Route: 048
     Dates: start: 20180111, end: 20180116

REACTIONS (3)
  - Disseminated intravascular coagulation [Fatal]
  - Neutrophil count decreased [Fatal]
  - Septic shock [Fatal]

NARRATIVE: CASE EVENT DATE: 20180127
